FAERS Safety Report 5289194-6 (Version None)
Quarter: 2007Q1

REPORT INFORMATION
  Report Type: 
  Country: None (occurrence: None)
  Receive Date: 20070118
  Receipt Date: 20061114
  Transmission Date: 20070707
  Serious: Yes (Other)
  Sender: FDA-Public Use
  Company Number: HQWYE840117NOV06

PATIENT
  Sex: Male

DRUGS (1)
  1. ADVIL PM [Suspect]
     Dosage: 1 CAPLET, 1 TIME, ORAL
     Route: 048
     Dates: start: 20061113, end: 20061113

REACTIONS (1)
  - SOMNOLENCE [None]
